FAERS Safety Report 9256942 (Version 2)
Quarter: 2013Q3

REPORT INFORMATION
  Report Type: Spontaneous
  Country: DE (occurrence: None)
  Receive Date: 20130423
  Receipt Date: 20130702
  Transmission Date: 20140515
  Serious: Yes (Other)
  Sender: FDA-Public Use
  Company Number: 1304-522

PATIENT
  Age: 86 Year
  Sex: Male

DRUGS (3)
  1. EYLEA (AFLIBERCEPT) (INJECTION) (AFLIBERCEPT) [Suspect]
     Indication: AGE-RELATED MACULAR DEGENERATION
     Route: 031
     Dates: start: 20130311, end: 20130311
  2. AMLODIN (AMLODIPINE BESILATE) (TABLET) [Concomitant]
  3. BEHYD (BENZYLHYDROCHLOROTHIAZIDE) (TALBET) [Concomitant]

REACTIONS (1)
  - Cerebral infarction [None]
